FAERS Safety Report 6153121-X (Version None)
Quarter: 2009Q2

REPORT INFORMATION
  Report Type: 
  Country: None (occurrence: None)
  Receive Date: 20090413
  Receipt Date: 20090406
  Transmission Date: 20091009
  Serious: Yes (Other)
  Sender: FDA-Public Use
  Company Number: US-ELI_LILLY_AND_COMPANY-US200904001140

PATIENT
  Sex: Female

DRUGS (2)
  1. HUMULIN 70/30 [Suspect]
  2. HUMULIN R [Suspect]

REACTIONS (4)
  - FOOT OPERATION [None]
  - OSTEOMYELITIS [None]
  - RENAL FAILURE [None]
  - TOE AMPUTATION [None]
